FAERS Safety Report 6719442-4 (Version None)
Quarter: 2010Q2

REPORT INFORMATION
  Report Type: 
  Country: None (occurrence: None)
  Receive Date: 20100510
  Receipt Date: 20100510
  Transmission Date: 20101027
  Serious: Yes (Other)
  Sender: FDA-Public Use
  Company Number: None

PATIENT
  Age: 9 Year
  Sex: Male
  Weight: 36.2878 kg

DRUGS (2)
  1. CETIRIZINE HCL [Suspect]
     Indication: MULTIPLE ALLERGIES
     Dosage: 10 MG EVERYDAY PO
     Route: 048
     Dates: start: 20100115, end: 20100509
  2. CLARITIN-D [Suspect]
     Indication: MULTIPLE ALLERGIES
     Dosage: 5 MG EVERYDAY PO
     Route: 048
     Dates: start: 20081220, end: 20090528

REACTIONS (12)
  - ABDOMINAL PAIN UPPER [None]
  - ABNORMAL BEHAVIOUR [None]
  - CHEST DISCOMFORT [None]
  - DYSPNOEA [None]
  - HEADACHE [None]
  - HEART RATE IRREGULAR [None]
  - MENTAL STATUS CHANGES [None]
  - MOOD ALTERED [None]
  - NIGHTMARE [None]
  - RASH [None]
  - WHEEZING [None]
  - WHITE BLOOD CELL COUNT DECREASED [None]
